FAERS Safety Report 6258765-2 (Version None)
Quarter: 2009Q3

REPORT INFORMATION
  Report Type: 
  Country: None (occurrence: None)
  Receive Date: 20090707
  Receipt Date: 20090701
  Transmission Date: 20100115
  Serious: Yes (Hospitalization)
  Sender: FDA-Public Use
  Company Number: US-MERCK-0907USA00279

PATIENT
  Age: 73 Year
  Sex: Female

DRUGS (14)
  1. SPIRIVA [Suspect]
     Indication: CHRONIC OBSTRUCTIVE PULMONARY DISEASE
     Dates: start: 20040101
  2. VYTORIN [Suspect]
     Route: 048
  3. ACTONEL [Suspect]
     Route: 048
     Dates: start: 20090514
  4. PHENOBARBITAL [Concomitant]
     Indication: CONVULSION
     Route: 048
  5. SINGULAIR [Concomitant]
     Indication: HYPERSENSITIVITY
     Route: 048
  6. ZYRTEC [Concomitant]
     Indication: HYPERSENSITIVITY
     Route: 065
  7. OXYGEN [Concomitant]
     Indication: CHRONIC OBSTRUCTIVE PULMONARY DISEASE
     Route: 065
  8. CLONIDINE [Concomitant]
     Indication: HYPERTENSION
     Route: 065
  9. DIOVAN [Concomitant]
     Indication: HYPERTENSION
     Route: 065
  10. NORVASC [Concomitant]
     Indication: HYPERTENSION
     Route: 065
  11. PREMARIN [Concomitant]
     Indication: MENOPAUSE
     Route: 065
  12. RANITIDINE [Concomitant]
     Indication: GASTROOESOPHAGEAL REFLUX DISEASE
     Route: 048
  13. VISTARIL [Concomitant]
     Indication: ANXIETY
     Route: 065
  14. OMEPRAZOLE [Concomitant]
     Indication: GASTROOESOPHAGEAL REFLUX DISEASE
     Route: 048

REACTIONS (12)
  - ASTHENIA [None]
  - BLOOD PRESSURE INCREASED [None]
  - DYSPNOEA [None]
  - FREQUENT BOWEL MOVEMENTS [None]
  - IMMUNODEFICIENCY [None]
  - MUSCLE SPASMS [None]
  - MUSCULOSKELETAL DISCOMFORT [None]
  - MUSCULOSKELETAL PAIN [None]
  - NAUSEA [None]
  - POLLAKIURIA [None]
  - RENAL DISORDER [None]
  - VOMITING [None]
